FAERS Safety Report 16459095 (Version 6)
Quarter: 2019Q4

REPORT INFORMATION
  Report Type: Spontaneous
  Country: US (occurrence: US)
  Receive Date: 20190620
  Receipt Date: 20191206
  Transmission Date: 20200122
  Serious: Yes (Hospitalization, Other)
  Sender: FDA-Public Use
  Company Number: US-CATALYST PHARMACEUTICALS, INC-2019CAT00200

PATIENT
  Age: 31 Year
  Sex: Male
  Weight: 65.31 kg

DRUGS (22)
  1. FIRDAPSE [Suspect]
     Active Substance: AMIFAMPRIDINE
     Dosage: 20 MG, 1X/DAY (7:00 AM)
     Route: 048
     Dates: start: 201907
  2. HUMALOG [Suspect]
     Active Substance: INSULIN LISPRO
     Dosage: 80 U DAILY VIA PUMP
  3. IMODIUM [Concomitant]
     Active Substance: LOPERAMIDE HYDROCHLORIDE
     Dosage: 2 MG, AS NEEDED AS DIRECTED
     Route: 048
  4. FIRDAPSE [Suspect]
     Active Substance: AMIFAMPRIDINE
     Dosage: 10 MG, 3X/DAY (11:00 AM, 4:00 PM, 9:00 PM)
     Route: 048
     Dates: start: 201907
  5. TPN [Suspect]
     Active Substance: AMINO ACIDS\DEXTROSE\ELECTROLYTES NOS\SOYBEAN OIL
     Indication: MALNUTRITION
     Dosage: UNK (OVER 12 HOURS, 5 DAYS PER WEEK)
     Dates: start: 201906, end: 20190911
  6. GAMMAGARD [Concomitant]
     Active Substance: HUMAN IMMUNOGLOBULIN G
     Indication: AUTONOMIC NEUROPATHY
     Dosage: 3 G, 2X/MONTH
     Route: 042
  7. PROBIOTIC [Concomitant]
     Active Substance: PROBIOTICS NOS
     Dosage: 1 CAPSULES, 1X/DAY
     Route: 048
  8. INTRALIPID [Concomitant]
     Active Substance: EGG PHOSPHOLIPIDS\GLYCERIN\SOYBEAN OIL
     Dosage: 250 ML, 1X/DAY
     Route: 042
  9. TPN [Suspect]
     Active Substance: AMINO ACIDS\DEXTROSE\ELECTROLYTES NOS\SOYBEAN OIL
     Dosage: UNK (OVER 12 HOURS, 5 DAYS PER WEEK)
     Dates: start: 20190918
  10. PROTONIX [Concomitant]
     Active Substance: PANTOPRAZOLE SODIUM
     Dosage: 20 MG, 1X/DAY
     Route: 048
  11. ZOFRAN ODT [Concomitant]
     Active Substance: ONDANSETRON HYDROCHLORIDE
     Indication: NAUSEA
     Dosage: 4 MG, UP TO 4X/DAY
     Route: 048
  12. LACTOBACILLUS [Concomitant]
     Active Substance: LACTOBACILLUS ACIDOPHILUS
     Dosage: 1 TABLETS, 1X/DAY
  13. FIRDAPSE [Suspect]
     Active Substance: AMIFAMPRIDINE
     Indication: MYASTHENIC SYNDROME
     Dosage: 10 MG, 3X/DAY
     Route: 048
     Dates: start: 20190423, end: 201907
  14. TPN [Suspect]
     Active Substance: AMINO ACIDS\DEXTROSE\ELECTROLYTES NOS\SOYBEAN OIL
     Dosage: UNK (OVER 10 HOURS)
     Dates: start: 20190911, end: 20190918
  15. GAMMAGARD [Concomitant]
     Active Substance: HUMAN IMMUNOGLOBULIN G
     Indication: TOXIC NEUROPATHY
  16. ADVIL [Concomitant]
     Active Substance: IBUPROFEN
     Dosage: 400 MG, AS NEEDED
  17. PYRIDOSTIGMINE [Concomitant]
     Active Substance: PYRIDOSTIGMINE
     Indication: MYASTHENIC SYNDROME
     Dosage: 60 MG, 3X/DAY
     Route: 048
  18. ELIQUIS [Concomitant]
     Active Substance: APIXABAN
     Dosage: 5 MG, 2X/DAY
     Route: 048
     Dates: start: 20190905
  19. ZOFRAN ODT [Concomitant]
     Active Substance: ONDANSETRON HYDROCHLORIDE
     Indication: VOMITING
     Dosage: 4 MG, UP TO 1X/DAY AS NEEDED
  20. VITAMIN D3 [Concomitant]
     Active Substance: CHOLECALCIFEROL
     Dosage: 1000 IU, 1X/DAY
     Route: 048
  21. ELIQUIS [Concomitant]
     Active Substance: APIXABAN
     Dosage: 5 MG, 2X/DAY
     Route: 048
  22. UNSPECIFIED ANTIIBIOTIC [Suspect]
     Active Substance: UNSPECIFIED INGREDIENT

REACTIONS (42)
  - Dehydration [Recovering/Resolving]
  - Hyponatraemia [Recovered/Resolved]
  - Gastrointestinal stoma complication [Unknown]
  - Nausea [Unknown]
  - Weight increased [Recovering/Resolving]
  - Blood magnesium decreased [Unknown]
  - Pyelonephritis acute [Recovering/Resolving]
  - Clostridium difficile infection [Recovered/Resolved]
  - Vascular device infection [Recovered/Resolved]
  - Hyperglycaemia [Recovered/Resolved]
  - Abdominal distension [Recovered/Resolved]
  - Vomiting [None]
  - Abdominal pain [Recovered/Resolved]
  - Muscle spasms [Unknown]
  - Product dose omission [Recovered/Resolved]
  - Procedural pain [Recovered/Resolved]
  - Hospitalisation [Unknown]
  - Staphylococcal bacteraemia [Recovered/Resolved]
  - Klebsiella infection [Unknown]
  - Electrolyte imbalance [None]
  - Myasthenic syndrome [Recovered/Resolved]
  - Sepsis [Recovered/Resolved]
  - Acute kidney injury [Recovered/Resolved]
  - Inflammatory bowel disease [Unknown]
  - Gastrointestinal anastomotic stenosis [Unknown]
  - Hypokalaemia [Recovered/Resolved]
  - Pseudohyponatraemia [Recovered/Resolved]
  - Pyloric stenosis [Unknown]
  - Fluid overload [Unknown]
  - Hypophagia [Not Recovered/Not Resolved]
  - Dysbiosis [Not Recovered/Not Resolved]
  - Septic shock [Recovering/Resolving]
  - Staphylococcal infection [Recovered/Resolved]
  - Oesophagocardiomyotomy [Recovered/Resolved]
  - Drug ineffective [Recovered/Resolved]
  - Cough [Unknown]
  - Diarrhoea [Recovering/Resolving]
  - Small intestinal obstruction [Unknown]
  - Urinary tract infection [Recovered/Resolved]
  - Decreased appetite [Recovering/Resolving]
  - Hypoglycaemia [Recovered/Resolved]
  - Asthenia [Recovering/Resolving]

NARRATIVE: CASE EVENT DATE: 2019
